FAERS Safety Report 8799104 (Version 1)
Quarter: 2012Q4

REPORT INFORMATION
  Report Type: 
  Country: US (occurrence: US)
  Receive Date: 20120920
  Receipt Date: 20120920
  Transmission Date: 20130627
  Serious: No
  Sender: FDA-Public Use
  Company Number: US-ASTRAZENECA-2011SE69565

PATIENT
  Age: 68 Year
  Sex: Female

DRUGS (13)
  1. LISINOPRIL [Suspect]
     Route: 048
  2. CRESTOR [Suspect]
     Route: 048
  3. ATENOLOL [Concomitant]
     Route: 048
  4. LOSARTAN POTASSIUM [Concomitant]
  5. DOXAZOSIN [Concomitant]
  6. EVISTA [Concomitant]
  7. LORATADINE [Concomitant]
  8. NAPROXEN [Concomitant]
  9. FLUTICASONE  PROPIONATE [Concomitant]
     Route: 045
  10. AMOXICILLIN [Concomitant]
  11. CALCIUM [Concomitant]
  12. MULTIPLE VITAMINS [Concomitant]
  13. VITAMIN C [Concomitant]

REACTIONS (9)
  - Eustachian tube obstruction [Unknown]
  - Areflexia [Unknown]
  - Paranasal sinus hypersecretion [Unknown]
  - Sneezing [Unknown]
  - Malaise [Unknown]
  - Nasopharyngitis [Unknown]
  - Cough [Unknown]
  - Drug hypersensitivity [Unknown]
  - Drug dose omission [Unknown]
